FAERS Safety Report 11726624 (Version 1)
Quarter: 2015Q4

REPORT INFORMATION
  Report Type: Spontaneous
  Country: US (occurrence: US)
  Receive Date: 20151112
  Receipt Date: 20151112
  Transmission Date: 20160304
  Serious: No
  Sender: FDA-Public Use
  Company Number: US-009507513-1510USA011561

PATIENT
  Age: 26 Year
  Sex: Female

DRUGS (1)
  1. NEXPLANON [Suspect]
     Active Substance: ETONOGESTREL
     Indication: CONTRACEPTION
     Dosage: 68 MG/ THREE YEARS
     Route: 059
     Dates: start: 20141031, end: 20151021

REACTIONS (4)
  - Device difficult to use [Recovered/Resolved]
  - Implant site pruritus [Unknown]
  - Device breakage [Recovered/Resolved]
  - Implant site urticaria [Unknown]

NARRATIVE: CASE EVENT DATE: 20151021
